FAERS Safety Report 11841691 (Version 1)
Quarter: 2015Q4

REPORT INFORMATION
  Report Type: Spontaneous
  Country: US (occurrence: US)
  Receive Date: 20151216
  Receipt Date: 20151216
  Transmission Date: 20160305
  Serious: No
  Sender: FDA-Public Use
  Company Number: US-RB-070449-14

PATIENT
  Age: 4 Year
  Sex: Female

DRUGS (2)
  1. DELSYM [Suspect]
     Active Substance: DEXTROMETHORPHAN
     Indication: PRODUCT USED FOR UNKNOWN INDICATION
     Dosage: 2.50ML. TOOK LAST ON 05-NOV-2014.,FREQUENCY UNK
     Route: 065
     Dates: start: 201411
  2. DELSYM [Suspect]
     Active Substance: DEXTROMETHORPHAN
     Dosage: 10ML. TOOK LAST ON 05-NOV-2014.,FREQUENCY UNK
     Route: 065
     Dates: start: 20141105

REACTIONS (2)
  - Overdose [Unknown]
  - No adverse event [Unknown]
